FAERS Safety Report 4562192-3 (Version None)
Quarter: 2005Q1

REPORT INFORMATION
  Report Type: 
  Country: None (occurrence: None)
  Receive Date: 20050124
  Receipt Date: 20050113
  Transmission Date: 20050727
  Serious: Yes (Death)
  Sender: FDA-Public Use
  Company Number: B0364460A

PATIENT
  Sex: 0

DRUGS (7)
  1. ALKERAN [Suspect]
     Indication: AMYLOIDOSIS
     Dosage: INTRAVENOUS
     Route: 042
  2. VINCRISTINE [Suspect]
  3. DOXORUBICIN HYDROCHLORIDE [Concomitant]
  4. DEXAMETHASONE [Suspect]
  5. CANCER CHEMOTHERAPY (FORMULATION UNKNOWN) (CANCER CHEMOTHERAPY) [Suspect]
     Indication: HAEMATOPOIETIC STEM CELL MOBILISATION
  6. GRANULOCYTE COL.STIM.FACT (FORMULATION UNKNOWN) (GRANULOCYTE COL.STIM. [Suspect]
     Indication: HAEMATOPOIETIC STEM CELL MOBILISATION
  7. STEM CELL TRANSPLANT [Concomitant]

REACTIONS (2)
  - NEUTROPENIA [None]
  - SEPTIC SHOCK [None]
